FAERS Safety Report 9625596 (Version 2)
Quarter: 2014Q2

REPORT INFORMATION
  Report Type: Spontaneous
  Country: US (occurrence: US)
  Receive Date: 20131016
  Receipt Date: 20140507
  Transmission Date: 20141212
  Serious: Yes (Hospitalization)
  Sender: FDA-Public Use
  Company Number: US-BAYER-2013-124985

PATIENT
  Age: 48 Year
  Sex: Female
  Weight: 54.42 kg

DRUGS (9)
  1. YAZ [Suspect]
     Indication: HAEMORRHAGE
     Dosage: UNK
     Dates: start: 200804, end: 20100129
  2. YAZ [Suspect]
     Indication: PREMENSTRUAL SYNDROME
  3. LISINOPRIL [Concomitant]
     Indication: HYPERTENSION
     Dosage: 20 MG, QD
  4. CETIRIZINE [Concomitant]
     Dosage: 10 MG, UNK
  5. FLUTICASONE [Concomitant]
     Dosage: 16 GM UNK, UNK
     Dates: start: 20100129
  6. LOPRESSOR [Concomitant]
  7. PRAVASTATIN [Concomitant]
  8. SENOKOT [Concomitant]
  9. FLONASE [Concomitant]

REACTIONS (13)
  - Coronary artery thrombosis [None]
  - Myocardial infarction [None]
  - Pain [None]
  - Injury [None]
  - General physical health deterioration [None]
  - Emotional distress [None]
  - Anhedonia [None]
  - Pain [None]
  - Anxiety [None]
  - Chest pain [None]
  - Hypertension [None]
  - Pain in extremity [None]
  - Pain in jaw [None]
